FAERS Safety Report 5924259-4 (Version None)
Quarter: 2008Q4

REPORT INFORMATION
  Report Type: 
  Country: None (occurrence: None)
  Receive Date: 20081015
  Receipt Date: 20081002
  Transmission Date: 20090506
  Serious: Yes (Hospitalization)
  Sender: FDA-Public Use
  Company Number: GXKR2008FR09467

PATIENT
  Age: 41 Year
  Sex: Female

DRUGS (1)
  1. DOXYCYCLINE [Suspect]
     Indication: ACNE

REACTIONS (12)
  - ACUTE FEBRILE NEUTROPHILIC DERMATOSIS [None]
  - ALANINE AMINOTRANSFERASE INCREASED [None]
  - CONJUNCTIVITIS [None]
  - EYELID OEDEMA [None]
  - GAMMA-GLUTAMYLTRANSFERASE INCREASED [None]
  - LYMPHADENITIS [None]
  - ODYNOPHAGIA [None]
  - OEDEMA [None]
  - PYREXIA [None]
  - RASH [None]
  - RASH PUSTULAR [None]
  - SKIN LESION [None]
